FAERS Safety Report 11484692 (Version 1)
Quarter: 2015Q3

REPORT INFORMATION
  Report Type: Spontaneous
  Country: US (occurrence: US)
  Receive Date: 20150903
  Receipt Date: 20150903
  Transmission Date: 20151125
  Serious: Yes (Death)
  Sender: FDA-Public Use
  Company Number: US-ELI_LILLY_AND_COMPANY-US201208006081

PATIENT
  Age: 50 Year
  Sex: Female

DRUGS (6)
  1. CYMBALTA [Suspect]
     Active Substance: DULOXETINE HYDROCHLORIDE
     Indication: DEPRESSION
     Dosage: 30 MG, QD
     Dates: start: 200912
  2. CYMBALTA [Suspect]
     Active Substance: DULOXETINE HYDROCHLORIDE
     Dosage: UNK, ON AND OFF
  3. XANAX [Concomitant]
     Active Substance: ALPRAZOLAM
     Dosage: UNK, UNKNOWN
  4. CYMBALTA [Suspect]
     Active Substance: DULOXETINE HYDROCHLORIDE
     Dosage: 60 MG, QD
  5. TRAMADOL. [Concomitant]
     Active Substance: TRAMADOL
     Dosage: UNK, UNKNOWN
  6. ZOLOFT [Concomitant]
     Active Substance: SERTRALINE HYDROCHLORIDE
     Dosage: UNK, UNKNOWN

REACTIONS (4)
  - Intentional overdose [Fatal]
  - Inappropriate schedule of drug administration [Unknown]
  - Completed suicide [Fatal]
  - Expired product administered [Unknown]

NARRATIVE: CASE EVENT DATE: 20120322
